FAERS Safety Report 6179148-X (Version None)
Quarter: 2009Q2

REPORT INFORMATION
  Report Type: 
  Country: None (occurrence: None)
  Receive Date: 20090505
  Receipt Date: 20090421
  Transmission Date: 20091009
  Serious: Yes (Other)
  Sender: FDA-Public Use
  Company Number: AT-ASTRAZENECA-2009PK00903

PATIENT
  Sex: Female

DRUGS (2)
  1. CRESTOR [Suspect]
     Dosage: FOR 5 DAYS
     Route: 048
     Dates: start: 20090101, end: 20090101
  2. ATACAND HCT [Concomitant]
     Indication: HYPERTENSION
     Dosage: 16MG/12MG DAILY

REACTIONS (2)
  - CYSTITIS HAEMORRHAGIC [None]
  - RENAL COLIC [None]
